FAERS Safety Report 8154302-6 (Version None)
Quarter: 2012Q1

REPORT INFORMATION
  Report Type: 
  Country: None (occurrence: None)
  Receive Date: 20120103
  Receipt Date: 20110829
  Transmission Date: 20120608
  Serious: No
  Sender: FDA-Public Use
  Company Number: AE-2011-000981

PATIENT
  Sex: Male

DRUGS (3)
  1. PEGASYS [Concomitant]
  2. INCIVEK [Suspect]
     Dosage: 2250 MG (750 MG,3 IN 1 D)
  3. RIBAVIRIN [Concomitant]

REACTIONS (5)
  - DEHYDRATION [None]
  - VOMITING [None]
  - UNDERDOSE [None]
  - DIARRHOEA [None]
  - RASH [None]
